FAERS Safety Report 21905728 (Version 1)
Quarter: 2023Q1

REPORT INFORMATION
  Report Type: Report from Study
  Country: TH (occurrence: TH)
  Receive Date: 20230124
  Receipt Date: 20230124
  Transmission Date: 20230418
  Serious: No
  Sender: FDA-Public Use
  Company Number: TH-BoehringerIngelheim-2021-BI-106949

PATIENT
  Sex: Female
  Weight: 52 kg

DRUGS (1)
  1. SPESOLIMAB [Suspect]
     Active Substance: SPESOLIMAB
     Indication: Pustular psoriasis
     Route: 058
     Dates: start: 20210423, end: 20210423

REACTIONS (1)
  - Maternal exposure during pregnancy [Unknown]
